FAERS Safety Report 9461328 (Version 2)
Quarter: 2014Q1

REPORT INFORMATION
  Report Type: Spontaneous
  Country: US (occurrence: US)
  Receive Date: 20130816
  Receipt Date: 20140109
  Transmission Date: 20141002
  Serious: No
  Sender: FDA-Public Use
  Company Number: US-PFIZER INC-2013237753

PATIENT
  Age: 60 Year
  Sex: Female
  Weight: 45.3 kg

DRUGS (6)
  1. XANAX [Suspect]
     Indication: OSTEOARTHRITIS
     Dosage: 2-3 TABLETS , UNK
  2. XANAX [Suspect]
     Indication: RHEUMATOID ARTHRITIS
  3. CHANTIX [Suspect]
     Indication: SMOKING CESSATION THERAPY
     Dosage: STARTER PACK
     Route: 048
     Dates: start: 20130813, end: 20130905
  4. PROTONIX [Concomitant]
     Indication: ULCER
     Dosage: 1 DF, 1X/DAY
  5. LORTAB [Concomitant]
     Indication: OSTEOARTHRITIS
     Dosage: 3-4 TABLETS, 1X/DAY
  6. LORTAB [Concomitant]
     Indication: RHEUMATOID ARTHRITIS

REACTIONS (3)
  - Nausea [Recovered/Resolved]
  - Vomiting [Recovered/Resolved]
  - Off label use [Unknown]
